FAERS Safety Report 14498328 (Version 1)
Quarter: 2018Q1

REPORT INFORMATION
  Report Type: Spontaneous
  Country: US (occurrence: US)
  Receive Date: 20180206
  Receipt Date: 20180206
  Transmission Date: 20180509
  Serious: Yes (Other)
  Sender: FDA-Public Use
  Company Number: None

PATIENT

DRUGS (2)
  1. CEFEPIME [Suspect]
     Active Substance: CEFEPIME HYDROCHLORIDE
  2. LANSOPRAZOLE. [Suspect]
     Active Substance: LANSOPRAZOLE

REACTIONS (6)
  - White blood cell count abnormal [None]
  - Neutrophil count abnormal [None]
  - Blood pressure increased [None]
  - Clostridium test positive [None]
  - Blood albumin abnormal [None]
  - Cholecystectomy [None]
